FAERS Safety Report 4348978-9 (Version None)
Quarter: 2004Q2

REPORT INFORMATION
  Report Type: 
  Country: None (occurrence: None)
  Receive Date: 20040423
  Receipt Date: 20040415
  Transmission Date: 20050107
  Serious: Yes (Hospitalization)
  Sender: FDA-Public Use
  Company Number: 04P-056-0257806-00

PATIENT
  Age: 47 Year
  Sex: Male
  Weight: 85 kg

DRUGS (7)
  1. ISOPTIN [Suspect]
     Dosage: 250 MG, PER ORAL
     Route: 048
     Dates: start: 19981215
  2. LINAPRIL ANHYDRE [Suspect]
     Dosage: 10 MG, PER ORAL
     Route: 048
     Dates: start: 19981215
  3. ATORVASTATIN [Suspect]
     Dosage: 40 MG, PER ORAL
     Route: 048
     Dates: start: 19981215, end: 19991104
  4. ASPIRIN [Suspect]
     Dosage: 250 MG, PER ORAL
     Route: 048
     Dates: start: 19981215
  5. TICLOPIDINE HCL [Suspect]
     Indication: MYOCARDIAL INFARCTION
     Dosage: 250 MG, PER ORAL
     Route: 048
     Dates: start: 19981215, end: 19991104
  6. BUFLOMEDIL [Suspect]
     Dosage: 900 MG, PER ORAL
     Route: 048
     Dates: start: 19981215
  7. FLUOXYMESTERONE [Suspect]
     Indication: PANCYTOPENIA
     Dates: start: 19991115

REACTIONS (4)
  - ANAEMIA [None]
  - BONE MARROW DEPRESSION [None]
  - PANCYTOPENIA [None]
  - THROMBOCYTOPENIA [None]
